FAERS Safety Report 6522370-0 (Version None)
Quarter: 2009Q4

REPORT INFORMATION
  Report Type: 
  Country: None (occurrence: None)
  Receive Date: 20091229
  Receipt Date: 20091229
  Transmission Date: 20100525
  Serious: Yes (Hospitalization)
  Sender: FDA-Public Use
  Company Number: None

PATIENT
  Age: 52 Year
  Sex: Male

DRUGS (1)
  1. PROMETHAZINE [Suspect]
     Indication: VOMITING
     Dosage: 25MG IV X 1
     Route: 042
     Dates: start: 20091006

REACTIONS (5)
  - CRIME [None]
  - HALLUCINATION [None]
  - MENTAL STATUS CHANGES [None]
  - VICTIM OF CRIME [None]
  - VOMITING [None]
